FAERS Safety Report 15263431 (Version 1)
Quarter: 2018Q3

REPORT INFORMATION
  Report Type: Report from Study
  Country: GB (occurrence: GB)
  Receive Date: 20180810
  Receipt Date: 20180810
  Transmission Date: 20181010
  Serious: Yes (Hospitalization, Other)
  Sender: FDA-Public Use
  Company Number: GB-ROCHE-2121339

PATIENT
  Sex: Female

DRUGS (2)
  1. ROACTEMRA [Suspect]
     Active Substance: TOCILIZUMAB
     Route: 058
     Dates: start: 20180409
  2. ROACTEMRA [Suspect]
     Active Substance: TOCILIZUMAB
     Indication: RHEUMATOID ARTHRITIS
     Route: 058
     Dates: start: 20180423

REACTIONS (15)
  - Arteritis [Unknown]
  - Malaise [Unknown]
  - Enteritis infectious [Unknown]
  - Discomfort [Unknown]
  - Movement disorder [Unknown]
  - Asthenia [Unknown]
  - Urinary tract infection [Unknown]
  - Fatigue [Unknown]
  - Pain [Unknown]
  - Intestinal scarring [Unknown]
  - Pyrexia [Unknown]
  - Vasculitis [Unknown]
  - Sleep disorder [Unknown]
  - Syncope [Unknown]
  - Infection [Unknown]
